FAERS Safety Report 9407130 (Version 1)
Quarter: 2013Q3

REPORT INFORMATION
  Report Type: Spontaneous
  Country: BE (occurrence: BE)
  Receive Date: 20130718
  Receipt Date: 20130718
  Transmission Date: 20140515
  Serious: Yes (Hospitalization)
  Sender: FDA-Public Use
  Company Number: BE-JNJFOC-20130706521

PATIENT
  Sex: Female

DRUGS (3)
  1. XARELTO [Suspect]
     Indication: PRODUCT USED FOR UNKNOWN INDICATION
     Route: 048
  2. LYSOMUCIL [Concomitant]
     Dosage: 300 MG/3ML
     Route: 065
  3. CLEXANE [Concomitant]
     Dosage: 60 MG/0.6 ML
     Route: 065

REACTIONS (2)
  - Rash erythematous [Recovered/Resolved]
  - Malaise [Recovered/Resolved]
